FAERS Safety Report 6284157-6 (Version None)
Quarter: 2009Q3

REPORT INFORMATION
  Report Type: 
  Country: None (occurrence: None)
  Receive Date: 20090722
  Receipt Date: 20090707
  Transmission Date: 20100115
  Serious: Yes (Life-Threatening, Hospitalization)
  Sender: FDA-Public Use
  Company Number: VAL_00294_2009

PATIENT
  Age: 12 Year
  Sex: Female

DRUGS (2)
  1. CARBAMAZEPINE [Suspect]
     Indication: SIMPLE PARTIAL SEIZURES
     Dosage: (DOSE WAS REDUCED FIRST AND THEN INTERRUPTED, DF)
  2. VALPROATE SODIUM [Suspect]
     Indication: SIMPLE PARTIAL SEIZURES
     Dosage: (DF)

REACTIONS (13)
  - ALANINE AMINOTRANSFERASE INCREASED [None]
  - ASPARTATE AMINOTRANSFERASE INCREASED [None]
  - DRUG INTERACTION [None]
  - DRUG RASH WITH EOSINOPHILIA AND SYSTEMIC SYMPTOMS [None]
  - DRUG TOXICITY [None]
  - FIBRIN D DIMER INCREASED [None]
  - GAMMA-GLUTAMYLTRANSFERASE INCREASED [None]
  - HUMAN HERPESVIRUS 6 INFECTION [None]
  - HUMAN HERPESVIRUS 7 INFECTION [None]
  - INTERNATIONAL NORMALISED RATIO INCREASED [None]
  - LIVER DISORDER [None]
  - LYMPHOPENIA [None]
  - PROTHROMBIN TIME PROLONGED [None]
